FAERS Safety Report 10924964 (Version 1)
Quarter: 2015Q1

REPORT INFORMATION
  Report Type: Spontaneous
  Country: US (occurrence: None)
  Receive Date: 20150316
  Receipt Date: 20150316
  Transmission Date: 20150721
  Serious: Yes (Disabling)
  Sender: FDA-Public Use
  Company Number: None

PATIENT
  Age: 62 Year
  Sex: Female
  Weight: 61.69 kg

DRUGS (6)
  1. ATORVASTATIN [Concomitant]
     Active Substance: ATORVASTATIN
  2. RAMIPRIL. [Concomitant]
     Active Substance: RAMIPRIL
  3. ZOLOFT [Concomitant]
     Active Substance: SERTRALINE HYDROCHLORIDE
  4. EQUATE ALLERGY RELIEF [Suspect]
     Active Substance: CETIRIZINE HYDROCHLORIDE\DIPHENHYDRAMINE HYDROCHLORIDE\FEXOFENADINE HYDROCHLORIDE\LORATADINE
  5. METFORMIN [Concomitant]
     Active Substance: METFORMIN HYDROCHLORIDE
  6. PROPRANOLOL [Concomitant]
     Active Substance: PROPRANOLOL\PROPRANOLOL HYDROCHLORIDE

REACTIONS (4)
  - Heart rate increased [None]
  - Blood pressure increased [None]
  - Blood glucose increased [None]
  - Feeling abnormal [None]

NARRATIVE: CASE EVENT DATE: 20150313
